FAERS Safety Report 8592893 (Version 2)
Quarter: 2013Q3

REPORT INFORMATION
  Report Type: Spontaneous
  Country: US (occurrence: US)
  Receive Date: 20120604
  Receipt Date: 20130722
  Transmission Date: 20140515
  Serious: Yes (Disabling, Other)
  Sender: FDA-Public Use
  Company Number: US-ASTRAZENECA-2012SE34597

PATIENT
  Age: 37 Year
  Sex: Male
  Weight: 71.2 kg

DRUGS (25)
  1. NEXIUM [Suspect]
     Indication: DYSPEPSIA
     Route: 048
     Dates: start: 1990
  2. NEXIUM [Suspect]
     Indication: DYSPEPSIA
     Route: 048
     Dates: start: 1990
  3. NEXIUM [Suspect]
     Indication: HYPERCHLORHYDRIA
     Route: 048
     Dates: start: 1990
  4. NEXIUM [Suspect]
     Indication: GASTRIC PH DECREASED
     Route: 048
     Dates: start: 1990
  5. NEXIUM [Suspect]
     Indication: DYSPEPSIA
     Route: 048
     Dates: start: 20120124
  6. NEXIUM [Suspect]
     Indication: DYSPEPSIA
     Route: 048
     Dates: start: 20120124
  7. NEXIUM [Suspect]
     Indication: HYPERCHLORHYDRIA
     Route: 048
     Dates: start: 20120124
  8. NEXIUM [Suspect]
     Indication: GASTRIC PH DECREASED
     Route: 048
     Dates: start: 20120124
  9. PEPCID [Concomitant]
  10. MINTOX [Concomitant]
     Dosage: 1 TEASPOON 4 TIMES A DAY AS NEEDED
     Dates: start: 2000
  11. ALENDRONATE [Concomitant]
     Indication: BONE LOSS
  12. CALCIUM [Concomitant]
  13. VIT D [Concomitant]
  14. FOLIC ACID [Concomitant]
  15. AMBIEN [Concomitant]
     Indication: INSOMNIA
  16. AMBIEN [Concomitant]
     Indication: INSOMNIA
  17. CELEBREX [Concomitant]
     Indication: PAIN
  18. TYLENOL [Concomitant]
     Indication: PAIN
  19. VITAMIN B 1A B12 [Concomitant]
     Indication: ASTHENIA
  20. B COMPLEX [Concomitant]
     Indication: PAIN
  21. OXYCONTIN [Concomitant]
  22. FERROUS SULPHATE [Concomitant]
  23. VITAMIN AND MINERALS [Concomitant]
  24. PROPOFOL [Concomitant]
  25. ZANTAC [Concomitant]
     Dates: start: 20110727

REACTIONS (19)
  - Post-traumatic osteoporosis [Unknown]
  - Arthritis [Unknown]
  - Arthrodesis [Unknown]
  - Femur fracture [Unknown]
  - Hip fracture [Unknown]
  - Osteoporosis [Unknown]
  - Multiple fractures [Unknown]
  - Scapula fracture [Unknown]
  - Foot fracture [Unknown]
  - Bone loss [Unknown]
  - Lower limb fracture [Unknown]
  - Tibia fracture [Unknown]
  - Fall [Unknown]
  - Hand fracture [Unknown]
  - Limb discomfort [Unknown]
  - Calcium deficiency [Unknown]
  - Rheumatoid arthritis [Unknown]
  - Vitamin D deficiency [Unknown]
  - Osteopenia [Unknown]
